FAERS Safety Report 22130005 (Version 3)
Quarter: 2023Q2

REPORT INFORMATION
  Report Type: Other
  Country: PK (occurrence: None)
  Receive Date: 20230323
  Receipt Date: 20230404
  Transmission Date: 20230721
  Serious: Yes (Death)
  Sender: FDA-Public Use
  Company Number: PK-ROCHE-3314881

PATIENT
  Age: 40 Year
  Sex: Male

DRUGS (1)
  1. RITUXIMAB [Suspect]
     Active Substance: RITUXIMAB
     Indication: Product used for unknown indication
     Dosage: RISTOVA THERAPY FOR 2 CYCLES?RISTOVA 500MG-H1078B01?RISTOVA 100MG-H1078B01
     Route: 042
     Dates: start: 20220914

REACTIONS (1)
  - Death [Fatal]
